FAERS Safety Report 9678900 (Version 2)
Quarter: 2013Q4

REPORT INFORMATION
  Report Type: Spontaneous
  Country: US (occurrence: US)
  Receive Date: 20131108
  Receipt Date: 20131114
  Transmission Date: 20140711
  Serious: Yes (Hospitalization)
  Sender: FDA-Public Use
  Company Number: US-BAXTER-2013BAX043712

PATIENT
  Age: 42 Year
  Sex: Female

DRUGS (2)
  1. DIANEAL LOW CALCIUM [Suspect]
     Indication: RENAL FAILURE CHRONIC
     Route: 033
     Dates: start: 20130727
  2. COUMADIN [Suspect]
     Indication: THROMBOSIS
     Route: 048
     Dates: start: 201305, end: 20131017

REACTIONS (3)
  - Ovarian cyst [Recovered/Resolved]
  - Ocular retrobulbar haemorrhage [Recovering/Resolving]
  - Blindness [Not Recovered/Not Resolved]
